FAERS Safety Report 21900226 (Version 1)
Quarter: 2023Q1

REPORT INFORMATION
  Report Type: Spontaneous
  Country: DE (occurrence: US)
  Receive Date: 20230123
  Receipt Date: 20230123
  Transmission Date: 20230417
  Serious: No
  Sender: FDA-Public Use
  Company Number: DE-NOVOPROD-960630

PATIENT
  Sex: Male
  Weight: 100 kg

DRUGS (1)
  1. OZEMPIC [Suspect]
     Active Substance: SEMAGLUTIDE
     Indication: Product used for unknown indication
     Dosage: UNK

REACTIONS (5)
  - Impaired work ability [Unknown]
  - Feeling abnormal [Unknown]
  - Insomnia [Unknown]
  - Decreased appetite [Unknown]
  - Off label use [Unknown]
